FAERS Safety Report 4773753-0 (Version None)
Quarter: 2005Q3

REPORT INFORMATION
  Report Type: 
  Country: None (occurrence: None)
  Receive Date: 20050920
  Receipt Date: 20050909
  Transmission Date: 20060218
  Serious: Yes (Life-Threatening)
  Sender: FDA-Public Use
  Company Number: GB-BRISTOL-MYERS SQUIBB COMPANY-13105879

PATIENT
  Age: 86 Year
  Sex: Male

DRUGS (11)
  1. ASPIRIN [Suspect]
     Indication: TRANSIENT ISCHAEMIC ATTACK
     Route: 048
  2. ASPIRIN [Suspect]
     Indication: ATRIAL FIBRILLATION
     Route: 048
  3. ASPIRIN [Suspect]
     Indication: PERIPHERAL VASCULAR DISORDER
     Route: 048
  4. WARFARIN SODIUM [Suspect]
     Indication: TRANSIENT ISCHAEMIC ATTACK
     Dosage: VARIABLE DOSE
     Route: 048
  5. WARFARIN SODIUM [Suspect]
     Indication: PERIPHERAL VASCULAR DISORDER
     Dosage: VARIABLE DOSE
     Route: 048
  6. WARFARIN SODIUM [Suspect]
     Indication: ATRIAL FIBRILLATION
     Dosage: VARIABLE DOSE
     Route: 048
  7. FUROSEMIDE [Concomitant]
     Route: 048
  8. LISINOPRIL [Concomitant]
     Route: 048
  9. SIMVASTATIN [Concomitant]
     Route: 048
  10. FYBOGEL [Concomitant]
     Dosage: VARIABLE DOSE
     Route: 048
  11. LEUPRORELIN [Concomitant]
     Route: 042

REACTIONS (3)
  - FAECES DISCOLOURED [None]
  - GASTROINTESTINAL HAEMORRHAGE [None]
  - SYNCOPE [None]
